FAERS Safety Report 21923613 (Version 1)
Quarter: 2023Q1

REPORT INFORMATION
  Report Type: Spontaneous
  Country: IT (occurrence: IT)
  Receive Date: 20230130
  Receipt Date: 20230130
  Transmission Date: 20230418
  Serious: Yes (Hospitalization)
  Sender: FDA-Public Use
  Company Number: None

PATIENT
  Age: 81 Year

DRUGS (3)
  1. VECTIBIX [Suspect]
     Active Substance: PANITUMUMAB
     Indication: Rectal adenocarcinoma
     Dosage: 276 MILLIGRAM (6 MG/KG DAYS 1 AND 15)
     Route: 040
     Dates: start: 20221229, end: 20230111
  2. VECTIBIX [Suspect]
     Active Substance: PANITUMUMAB
     Dosage: 276 MILLIGRAM  (6 MG/KG DAYS 1 AND 15)
     Route: 040
     Dates: start: 20221229, end: 20230111
  3. OXALIPLATIN [Suspect]
     Active Substance: OXALIPLATIN
     Indication: Rectal adenocarcinoma
     Dosage: 99.17 MILLIGRAM (70MG/SQ.M DAYS 1 AND 15)
     Route: 040
     Dates: start: 20221229, end: 20230111

REACTIONS (2)
  - Throat tightness [Recovered/Resolved]
  - Paraesthesia [Recovered/Resolved]

NARRATIVE: CASE EVENT DATE: 20230111
